FAERS Safety Report 5824266-6 (Version None)
Quarter: 2008Q3

REPORT INFORMATION
  Report Type: 
  Country: None (occurrence: None)
  Receive Date: 20080728
  Receipt Date: 20080716
  Transmission Date: 20090109
  Serious: Yes (Hospitalization)
  Sender: FDA-Public Use
  Company Number: FR-AVENTIS-200812735FR

PATIENT
  Age: 78 Year
  Sex: Male

DRUGS (11)
  1. LASIX [Suspect]
     Indication: DRUG USE FOR UNKNOWN INDICATION
     Route: 048
     Dates: end: 20080524
  2. LASIX [Suspect]
     Route: 042
     Dates: start: 20080524, end: 20080526
  3. ROCEPHIN [Suspect]
     Indication: PYURIA
     Route: 042
     Dates: start: 20080526, end: 20080529
  4. CIFLOX                             /00697201/ [Suspect]
     Indication: PYURIA
     Route: 048
     Dates: start: 20080526, end: 20080529
  5. PREVISCAN                          /00789001/ [Concomitant]
     Indication: DRUG USE FOR UNKNOWN INDICATION
     Route: 048
  6. CORDARONE [Concomitant]
     Indication: DRUG USE FOR UNKNOWN INDICATION
  7. NOVONORM [Concomitant]
     Indication: DRUG USE FOR UNKNOWN INDICATION
     Route: 048
  8. TRIATEC                            /00885601/ [Concomitant]
     Indication: DRUG USE FOR UNKNOWN INDICATION
     Route: 048
  9. NEXIUM [Concomitant]
     Indication: DRUG USE FOR UNKNOWN INDICATION
  10. XATRAL                             /00975301/ [Concomitant]
     Indication: DRUG USE FOR UNKNOWN INDICATION
     Route: 048
  11. LEVOTHYROX [Concomitant]
     Indication: DRUG USE FOR UNKNOWN INDICATION
     Route: 048

REACTIONS (2)
  - DRUG INTERACTION [None]
  - RENAL FAILURE ACUTE [None]
